FAERS Safety Report 13640999 (Version 1)
Quarter: 2017Q2

REPORT INFORMATION
  Report Type: Spontaneous
  Country: US (occurrence: US)
  Receive Date: 20170612
  Receipt Date: 20170612
  Transmission Date: 20170830
  Serious: No
  Sender: FDA-Public Use
  Company Number: US-TEVA-769897ACC

PATIENT
  Sex: Male

DRUGS (1)
  1. ABACAVIR W/LAMIVUDINE [Suspect]
     Active Substance: ABACAVIR\LAMIVUDINE
     Dosage: 600MG/300MG
     Route: 048
     Dates: start: 20170426, end: 20170510

REACTIONS (3)
  - Product substitution issue [Unknown]
  - Product odour abnormal [Unknown]
  - Rash pruritic [Unknown]

NARRATIVE: CASE EVENT DATE: 20170427
